FAERS Safety Report 17189938 (Version 1)
Quarter: 2019Q4

REPORT INFORMATION
  Report Type: Spontaneous
  Country: US (occurrence: US)
  Receive Date: 20191223
  Receipt Date: 20191223
  Transmission Date: 20200122
  Serious: No
  Sender: FDA-Public Use
  Company Number: NVSC2019US074779

PATIENT
  Sex: Female

DRUGS (2)
  1. ALPELISIB [Suspect]
     Active Substance: ALPELISIB
     Indication: BREAST CANCER METASTATIC
     Dosage: 300 MG, QD
     Route: 048
     Dates: start: 20191216
  2. ALPELISIB [Suspect]
     Active Substance: ALPELISIB
     Indication: HER-2 POSITIVE BREAST CANCER

REACTIONS (3)
  - Corneal oedema [Recovering/Resolving]
  - Hyperglycaemia [Recovering/Resolving]
  - Rash [Recovering/Resolving]
